FAERS Safety Report 7518318-2 (Version None)
Quarter: 2011Q2

REPORT INFORMATION
  Report Type: 
  Country: None (occurrence: None)
  Receive Date: 20110512
  Receipt Date: 20110307
  Transmission Date: 20111010
  Serious: No
  Sender: FDA-Public Use
  Company Number: 1000019143

PATIENT
  Age: 68 Year
  Sex: Female

DRUGS (13)
  1. MOBIC [Concomitant]
  2. MULTIVITAMINS (MULTIVITAMINS) (MULTIVITAMINS) [Concomitant]
  3. LISINOPRIL [Concomitant]
  4. VITAMIN D (VITAMIN D) (VITAMIN D) [Concomitant]
  5. VITAMIN E (VITAMIN E) (VITAMIN E) [Concomitant]
  6. SAVELLA [Suspect]
     Indication: FIBROMYALGIA
     Dosage: SEE IMAGE, ORAL
     Route: 048
     Dates: start: 20100101, end: 20100101
  7. SAVELLA [Suspect]
     Indication: FIBROMYALGIA
     Dosage: SEE IMAGE, ORAL
     Route: 048
     Dates: start: 20100101, end: 20100101
  8. SAVELLA [Suspect]
     Indication: FIBROMYALGIA
     Dosage: SEE IMAGE, ORAL
     Route: 048
     Dates: start: 20100101, end: 20100101
  9. SAVELLA [Suspect]
     Indication: FIBROMYALGIA
     Dosage: 100 MG (50 MG, 2 IN 1 D), ORAL, 100 MG (50 MG, 2 IN 1 D), ORAL
     Route: 048
     Dates: start: 20100101, end: 20101101
  10. SAVELLA [Suspect]
     Indication: FIBROMYALGIA
     Dosage: 100 MG (50 MG, 2 IN 1 D), ORAL, 100 MG (50 MG, 2 IN 1 D), ORAL
     Route: 048
     Dates: start: 20110101
  11. GLUCOSAMINE (GLUCOSAMINE) (GLUCOSAMINE) [Concomitant]
  12. ESTRACE (ESTRADIOL) (ESTRADIOL) [Concomitant]
  13. PROPRANOLOL [Concomitant]

REACTIONS (4)
  - PRURITUS [None]
  - FLUSHING [None]
  - HYPERHIDROSIS [None]
  - INSOMNIA [None]
